FAERS Safety Report 11826295 (Version 3)
Quarter: 2016Q1

REPORT INFORMATION
  Report Type: Spontaneous
  Country: JP (occurrence: JP)
  Receive Date: 20151211
  Receipt Date: 20160314
  Transmission Date: 20160525
  Serious: Yes (Death, Other)
  Sender: FDA-Public Use
  Company Number: JP-ELI_LILLY_AND_COMPANY-JP201512000449

PATIENT
  Sex: Male
  Weight: 83.6 kg

DRUGS (8)
  1. DEXAMETHASONE. [Concomitant]
     Active Substance: DEXAMETHASONE
     Indication: PROPHYLAXIS OF NAUSEA AND VOMITING
     Dosage: 6.6 MG, OTHER
     Route: 042
     Dates: start: 20150707, end: 20150804
  2. CYRAMZA [Suspect]
     Active Substance: RAMUCIRUMAB
     Dosage: UNK
     Route: 042
     Dates: start: 20150908, end: 20150908
  3. CYRAMZA [Suspect]
     Active Substance: RAMUCIRUMAB
     Indication: OESOPHAGEAL ADENOCARCINOMA
     Dosage: 690 MG, OTHER
     Route: 042
     Dates: start: 20150707, end: 20150804
  4. PACLITAXEL. [Concomitant]
     Active Substance: PACLITAXEL
     Indication: OESOPHAGEAL ADENOCARCINOMA
     Dosage: 150 MG, OTHER
     Route: 042
     Dates: start: 20150707, end: 20150804
  5. CHLORPHENAMINE MALEATE [Concomitant]
     Active Substance: CHLORPHENIRAMINE MALEATE
     Indication: ALLERGY PROPHYLAXIS
     Dosage: 10 MG, OTHER
     Route: 042
     Dates: start: 20150707, end: 20150804
  6. NAIXAN                             /00256201/ [Concomitant]
     Active Substance: NAPROXEN
     Dosage: UNK
     Dates: start: 20150630
  7. CALONAL [Concomitant]
     Active Substance: ACETAMINOPHEN
     Dosage: UNK
     Dates: start: 20150521
  8. RANITIDINE [Concomitant]
     Active Substance: RANITIDINE\RANITIDINE HYDROCHLORIDE
     Indication: ALLERGY PROPHYLAXIS
     Dosage: 50 MG, OTHER
     Route: 042
     Dates: start: 20150707, end: 20150804

REACTIONS (2)
  - Hepatic failure [Fatal]
  - Malignant neoplasm progression [Unknown]
